FAERS Safety Report 9177328 (Version 1)
Quarter: 2013Q1

REPORT INFORMATION
  Report Type: Spontaneous
  Country: FR (occurrence: None)
  Receive Date: 20130319
  Receipt Date: 20130319
  Transmission Date: 20140127
  Serious: Yes (Hospitalization)
  Sender: FDA-Public Use
  Company Number: AUR-APL-2013-02222

PATIENT
  Age: 59 Year
  Sex: Male

DRUGS (8)
  1. BISOPROLOL [Suspect]
     Indication: PRODUCT USED FOR UNKNOWN INDICATION
     Dates: end: 20130118
  2. CORDARONE [Suspect]
     Indication: PRODUCT USED FOR UNKNOWN INDICATION
     Dates: end: 20130118
  3. KARDEGIC [Suspect]
     Indication: PRODUCT USED FOR UNKNOWN INDICATION
     Route: 048
     Dates: end: 20130115
  4. PRADAXA [Suspect]
     Indication: ATRIAL FIBRILLATION
     Dosage: (110 MG,2 IN 1 D)
     Route: 048
     Dates: start: 20120918, end: 20130115
  5. LASILIX (FUROSEMIDE) [Concomitant]
  6. INEXIUM (ESOMEPRAZOLE MAGNESIUM) [Concomitant]
  7. PERINDOPRIL (PERINDOPRIL) [Concomitant]
  8. ZOPICLONE (ZOPICLONE) [Concomitant]

REACTIONS (7)
  - Haemoptysis [None]
  - Anaemia [None]
  - Hyperthyroidism [None]
  - Lung disorder [None]
  - Organising pneumonia [None]
  - Alveolar proteinosis [None]
  - Pneumocystis jirovecii pneumonia [None]
